FAERS Safety Report 9496465 (Version 2)
Quarter: 2013Q3

REPORT INFORMATION
  Report Type: Report from Study
  Country: BR (occurrence: BR)
  Receive Date: 20130904
  Receipt Date: 20130904
  Transmission Date: 20140515
  Serious: Yes (Other)
  Sender: FDA-Public Use
  Company Number: PHHY2013BR065849

PATIENT
  Sex: Female

DRUGS (1)
  1. VALSARTAN / DIOVAN / VAL489 / CGP 48933 [Suspect]
     Indication: HYPERTENSION
     Dosage: 1 DF (160MG), DAILY

REACTIONS (1)
  - Uterine leiomyoma [Recovering/Resolving]
